FAERS Safety Report 6121012-6 (Version None)
Quarter: 2009Q1

REPORT INFORMATION
  Report Type: 
  Country: None (occurrence: None)
  Receive Date: 20090317
  Receipt Date: 20090307
  Transmission Date: 20090719
  Serious: Yes (Other)
  Sender: FDA-Public Use
  Company Number: PHHY2009BR08666

PATIENT
  Age: 83 Year
  Sex: Female

DRUGS (5)
  1. DIOVAN HCT [Suspect]
     Indication: HYPERTENSION
     Dosage: ONE TABLET (80/12.5 MG) DAILY
     Route: 048
  2. DIOVAN HCT [Suspect]
     Dosage: ONE TABLET (160/25 MG) DAILY
     Route: 048
  3. PURAN T4 [Concomitant]
     Indication: HYPOTHYROIDISM
     Dosage: ONE TABLET AT 6AM
     Route: 048
  4. CALCIUM [Concomitant]
     Indication: BLOOD CALCIUM
     Dosage: ONE TABLET DAILY
  5. MEDICATION PREPARED BY A PHARMACIST FOR CIRCULATION [Concomitant]
     Dosage: STARTED A LONG TIME AGO
     Route: 048

REACTIONS (3)
  - BLOOD PRESSURE INCREASED [None]
  - BREAST MASS [None]
  - SURGERY [None]
